FAERS Safety Report 8820579 (Version 2)
Quarter: 2012Q4

REPORT INFORMATION
  Report Type: 
  Country: IT (occurrence: IT)
  Receive Date: 20121002
  Receipt Date: 20121016
  Transmission Date: 20130627
  Serious: Yes (Hospitalization)
  Sender: FDA-Public Use
  Company Number: IT-PFIZER INC-2012242737

PATIENT
  Age: 79 Year
  Sex: Male

DRUGS (13)
  1. AMIODARONE HCL [Suspect]
     Indication: ATRIAL FIBRILLATION
     Dosage: 200 mg, 1x/day
     Route: 048
     Dates: start: 20120803
  2. COUMADIN [Suspect]
     Indication: ATRIAL FIBRILLATION
     Dosage: 5mg at a dose of 1 tablet as per need
     Route: 048
     Dates: start: 20100922, end: 20120919
  3. MERREM [Suspect]
     Indication: BRONCHOPNEUMONIA
     Dosage: 1500 mg, 1x/day
     Route: 042
     Dates: start: 20120915
  4. TARGOSID [Suspect]
     Indication: BRONCHOPNEUMONIA
     Dosage: 400 milligrams; Every other day
     Route: 042
     Dates: start: 20120915
  5. NEXIUM [Concomitant]
     Dosage: Unk
  6. ZOLOFT [Concomitant]
     Dosage: Unk
  7. AVODART [Concomitant]
     Dosage: Unk
  8. ZYLORIC [Concomitant]
     Dosage: Unk
  9. TORVAST [Concomitant]
     Dosage: Unk
  10. LYRICA [Concomitant]
     Dosage: Unk
  11. DEURSIL [Concomitant]
     Dosage: Unk
  12. IDROPLURIVIT [Concomitant]
     Dosage: Unk
  13. TACHIPIRINA [Concomitant]
     Dosage: Unk

REACTIONS (1)
  - Hypocoagulable state [Recovered/Resolved]
